FAERS Safety Report 5129558-4 (Version None)
Quarter: 2006Q4

REPORT INFORMATION
  Report Type: 
  Country: None (occurrence: None)
  Receive Date: 20061012
  Receipt Date: 20060929
  Transmission Date: 20070319
  Serious: Yes (Death)
  Sender: FDA-Public Use
  Company Number: 2006S1008001

PATIENT
  Age: 41 Year
  Sex: Female

DRUGS (3)
  1. AMITRIPTYLINE HYDROCHLORIDE [Suspect]
     Indication: DEPRESSION
  2. KADIAN [Suspect]
     Indication: BACK PAIN
     Dosage: 60 MG; QD; PO
     Route: 048
     Dates: start: 20031022, end: 20031023
  3. OXYCODONE HCL [Concomitant]

REACTIONS (7)
  - COMPLETED SUICIDE [None]
  - DRUG TOLERANCE [None]
  - DRUG WITHDRAWAL SYNDROME [None]
  - ECONOMIC PROBLEM [None]
  - MULTIPLE DRUG OVERDOSE INTENTIONAL [None]
  - TREATMENT NONCOMPLIANCE [None]
  - WRONG TECHNIQUE IN DRUG USAGE PROCESS [None]
